FAERS Safety Report 7950898-5 (Version None)
Quarter: 2011Q4

REPORT INFORMATION
  Report Type: 
  Country: None (occurrence: None)
  Receive Date: 20111201
  Receipt Date: 20111123
  Transmission Date: 20120403
  Serious: No
  Sender: FDA-Public Use
  Company Number: US-BIOGENIDEC-2010BI002597

PATIENT
  Sex: Female

DRUGS (4)
  1. TYSABRI [Suspect]
     Route: 042
     Dates: start: 20100101
  2. AVONEX [Concomitant]
     Route: 030
  3. TYSABRI [Suspect]
     Indication: MULTIPLE SCLEROSIS
     Route: 042
  4. AVONEX [Concomitant]
     Indication: MULTIPLE SCLEROSIS
     Route: 030

REACTIONS (9)
  - MUSCULAR WEAKNESS [None]
  - HEADACHE [None]
  - LOSS OF CONTROL OF LEGS [None]
  - GAIT DISTURBANCE [None]
  - HYPOAESTHESIA [None]
  - PERIPHERAL COLDNESS [None]
  - FATIGUE [None]
  - MUSCULOSKELETAL PAIN [None]
  - ASTHENIA [None]
